FAERS Safety Report 10434899 (Version 2)
Quarter: 2014Q4

REPORT INFORMATION
  Report Type: Spontaneous
  Country: US (occurrence: US)
  Receive Date: 20140906
  Receipt Date: 20141021
  Transmission Date: 20150528
  Serious: No
  Sender: FDA-Public Use
  Company Number: US-009507513-1409USA001466

PATIENT
  Sex: Female
  Weight: 84 kg

DRUGS (1)
  1. NEXPLANON [Suspect]
     Active Substance: ETONOGESTREL
     Dosage: UNK
     Dates: start: 20131011

REACTIONS (3)
  - Device dislocation [Not Recovered/Not Resolved]
  - Local swelling [Unknown]
  - Device breakage [Not Recovered/Not Resolved]
